FAERS Safety Report 7298727-X (Version None)
Quarter: 2011Q1

REPORT INFORMATION
  Report Type: 
  Country: None (occurrence: None)
  Receive Date: 20110209
  Receipt Date: 20110125
  Transmission Date: 20110831
  Serious: Yes (Hospitalization)
  Sender: FDA-Public Use
  Company Number: AUR-APL-2011-00352

PATIENT
  Age: 70 Year
  Sex: Male

DRUGS (7)
  1. BACLOFEN [Suspect]
     Indication: MUSCLE SPASTICITY
     Dosage: 10, 3 X 0.5 - ORAL
     Route: 048
     Dates: start: 20090101
  2. METOPROLOL [Suspect]
     Indication: HYPERTENSION
     Dosage: 1DF(50)-DAILY
     Dates: start: 20090101
  3. METFORMIN [Suspect]
     Indication: DIABETES MELLITUS
     Dosage: 1000-BID-ORAL
     Route: 048
     Dates: start: 20090101
  4. CITALOPRAM [Suspect]
     Indication: DEPRESSION
     Dosage: 40 - ORAL
     Route: 048
     Dates: start: 20090101
  5. ISCOVER (CLOPIDOGREL) [Suspect]
     Indication: PLATELET AGGREGATION
     Dosage: 1DF - DAILY - ORAL
     Route: 048
     Dates: start: 20090101
  6. RAMIPRIL [Concomitant]
  7. GABAPENTIN [Concomitant]

REACTIONS (1)
  - GASTRIC ULCER [None]
